FAERS Safety Report 21789758 (Version 1)
Quarter: 2022Q4

REPORT INFORMATION
  Report Type: Report from Study
  Country: US (occurrence: US)
  Receive Date: 20221228
  Receipt Date: 20221228
  Transmission Date: 20230113
  Serious: Yes (Hospitalization)
  Sender: FDA-Public Use
  Company Number: US-ABBVIE-4251475

PATIENT
  Sex: Male

DRUGS (1)
  1. VENCLEXTA [Suspect]
     Active Substance: VENETOCLAX
     Indication: Acute myeloid leukaemia (in remission)
     Dosage: TIME INTERVAL: 0.125 DAYS: VENCLEXTA WAS DISCONTINUED ON DEC 2022; HOSPITALIZATION OCCURRED ON AN...
     Route: 048
     Dates: start: 20221203

REACTIONS (1)
  - Hospitalisation [Unknown]
